FAERS Safety Report 23739850 (Version 3)
Quarter: 2024Q2

REPORT INFORMATION
  Report Type: Spontaneous
  Country: US (occurrence: US)
  Receive Date: 20240414
  Receipt Date: 20240514
  Transmission Date: 20240716
  Serious: No
  Sender: FDA-Public Use
  Company Number: US-SA-SAC20240408000146

PATIENT
  Age: 5 Year
  Sex: Male

DRUGS (1)
  1. DUPIXENT [Suspect]
     Active Substance: DUPILUMAB
     Indication: Eosinophilic oesophagitis
     Dosage: 200 MG, QOW
     Route: 058
     Dates: start: 20240319

REACTIONS (9)
  - Skin swelling [Recovering/Resolving]
  - Mastocytoma [Unknown]
  - Pruritus [Recovering/Resolving]
  - Erythema [Recovering/Resolving]
  - Ocular hyperaemia [Recovered/Resolved]
  - Eye swelling [Unknown]
  - Eye pruritus [Recovered/Resolved]
  - Eye irritation [Unknown]
  - Product use issue [Unknown]

NARRATIVE: CASE EVENT DATE: 20240101
